FAERS Safety Report 16924751 (Version 5)
Quarter: 2019Q4

REPORT INFORMATION
  Report Type: Spontaneous
  Country: US (occurrence: US)
  Receive Date: 20191016
  Receipt Date: 20191211
  Transmission Date: 20200122
  Serious: Yes (Other)
  Sender: FDA-Public Use
  Company Number: US-PFIZER INC-2019447911

PATIENT
  Age: 95 Year
  Sex: Female
  Weight: 50.79 kg

DRUGS (6)
  1. METOPROLOL. [Concomitant]
     Active Substance: METOPROLOL
     Indication: BLOOD PRESSURE ABNORMAL
     Dosage: 25 MG, 1X/DAY
     Route: 048
     Dates: start: 2013
  2. CLONIDINE. [Concomitant]
     Active Substance: CLONIDINE
     Indication: BLOOD PRESSURE ABNORMAL
     Dosage: 0.2 MG, 1X/DAY
     Route: 048
     Dates: start: 2013
  3. IRBESARTAN HYDROCHLOROTHIAZIDE [Concomitant]
     Active Substance: HYDROCHLOROTHIAZIDE\IRBESARTAN
     Indication: BLOOD PRESSURE ABNORMAL
     Dosage: UNK UNK, 1X/DAY [300MG/12.5MG TABLETS BY MOUTH ONCE DAILY]
     Route: 048
     Dates: start: 2013
  4. ASPIRIN [ACETYLSALICYLIC ACID] [Concomitant]
     Active Substance: ASPIRIN
     Dosage: 81 MG, 1X/DAY
     Route: 048
  5. ADVIL [Suspect]
     Active Substance: IBUPROFEN
     Dosage: UNK
  6. ADVIL [Suspect]
     Active Substance: IBUPROFEN
     Indication: PAIN
     Dosage: 400 MG (TWO TABLETS) AS NEEDED
     Route: 048

REACTIONS (5)
  - Chest injury [Unknown]
  - Insomnia [Unknown]
  - Cough [Unknown]
  - Product closure removal difficult [Unknown]
  - Pain [Unknown]

NARRATIVE: CASE EVENT DATE: 20191013
